FAERS Safety Report 7291719-6 (Version None)
Quarter: 2011Q1

REPORT INFORMATION
  Report Type: 
  Country: None (occurrence: None)
  Receive Date: 20110214
  Receipt Date: 20110201
  Transmission Date: 20110831
  Serious: Yes (Other)
  Sender: FDA-Public Use
  Company Number: JP-PFIZER INC-2011030204

PATIENT
  Age: 84 Year
  Sex: Female

DRUGS (2)
  1. AZULFIDINE [Concomitant]
  2. CELECOXIB [Suspect]
     Indication: RHEUMATOID ARTHRITIS
     Dosage: 200 MG, DAILY
     Route: 048
     Dates: start: 20110121, end: 20110131

REACTIONS (1)
  - TOXIC SKIN ERUPTION [None]
